FAERS Safety Report 12316897 (Version 3)
Quarter: 2016Q3

REPORT INFORMATION
  Report Type: Spontaneous
  Country: JP (occurrence: JP)
  Receive Date: 20160429
  Receipt Date: 20160804
  Transmission Date: 20161109
  Serious: Yes (Hospitalization, Other)
  Sender: FDA-Public Use
  Company Number: JP-BRISTOL-MYERS SQUIBB COMPANY-BMS-2016-032287

PATIENT
  Age: 95 Year
  Sex: Female
  Weight: 39 kg

DRUGS (7)
  1. BAYASPIRIN [Suspect]
     Active Substance: ASPIRIN
     Dosage: 100 MG, QD
     Route: 048
     Dates: start: 20160408
  2. ATORVASTATINE                      /01326101/ [Concomitant]
     Active Substance: ATORVASTATIN
     Indication: ARTERIOSCLEROSIS
     Dosage: 5 MG, QD
     Route: 065
     Dates: start: 20160201
  3. ELIQUIS [Suspect]
     Active Substance: APIXABAN
     Indication: CEREBROVASCULAR ACCIDENT PROPHYLAXIS
     Dosage: 2.5 MG, BID
     Route: 048
     Dates: start: 201508
  4. ELIQUIS [Suspect]
     Active Substance: APIXABAN
     Dosage: 2.5 MG, BID
     Route: 048
     Dates: start: 20160408
  5. ELIQUIS [Suspect]
     Active Substance: APIXABAN
     Dosage: 2.5 MG, BID
     Route: 048
  6. BAYASPIRIN [Suspect]
     Active Substance: ASPIRIN
     Indication: CEREBROVASCULAR ACCIDENT PROPHYLAXIS
     Dosage: 100 MG, QD
     Route: 048
     Dates: start: 201508, end: 20160405
  7. OVULANZE [Concomitant]
     Active Substance: OMEPRAZOLE
     Indication: HAEMORRHAGE
     Dosage: 10 MG, QD
     Route: 048
     Dates: start: 20160201

REACTIONS (7)
  - Haematoma [Unknown]
  - Pollakiuria [Recovered/Resolved]
  - Bladder tamponade [Recovered/Resolved]
  - Haematoma evacuation [Unknown]
  - Transfusion [Unknown]
  - Urinary bladder haemorrhage [Unknown]
  - Haematuria [Recovered/Resolved]

NARRATIVE: CASE EVENT DATE: 201603
